FAERS Safety Report 18213660 (Version 1)
Quarter: 2020Q3

REPORT INFORMATION
  Report Type: Spontaneous
  Country: JP (occurrence: JP)
  Receive Date: 20200831
  Receipt Date: 20200831
  Transmission Date: 20201103
  Serious: Yes (Other)
  Sender: FDA-Public Use
  Company Number: JP-MYLANLABS-2020M1074608

PATIENT
  Age: 25 Year
  Sex: Female
  Weight: 42 kg

DRUGS (11)
  1. PROPOFOL. [Suspect]
     Active Substance: PROPOFOL
     Dosage: DOSE: 2.5?3.0 MCG/ML FOR GENERAL ANAESTHESIA MAINTENANCE.
     Route: 042
  2. HYDROCORTISONE. [Suspect]
     Active Substance: HYDROCORTISONE
     Indication: STEROID THERAPY
     Route: 013
  3. PHENYLEPHRINE [Suspect]
     Active Substance: PHENYLEPHRINE HYDROCHLORIDE
     Indication: HYPOTENSION
     Route: 042
  4. PROPOFOL. [Suspect]
     Active Substance: PROPOFOL
     Indication: GENERAL ANAESTHESIA
     Dosage: DOSE: 3.0 MCG/ML
     Route: 042
  5. FENTANYL. [Suspect]
     Active Substance: FENTANYL
     Dosage: FOR GENERAL ANAESTHESIA MAINTENANCE.
     Route: 042
  6. ROCURONIUM [Suspect]
     Active Substance: ROCURONIUM BROMIDE
     Indication: GENERAL ANAESTHESIA
     Dosage: 50 MILLIGRAM
     Route: 042
  7. ROCURONIUM [Suspect]
     Active Substance: ROCURONIUM BROMIDE
     Dosage: FOR GENERAL ANAESTHESIA MAINTENANCE.
     Route: 042
  8. PREDNISOLONE. [Suspect]
     Active Substance: PREDNISOLONE
     Indication: TAKAYASU^S ARTERITIS
     Route: 048
  9. FENTANYL. [Suspect]
     Active Substance: FENTANYL
     Indication: GENERAL ANAESTHESIA
     Dosage: 0.2 MILLIGRAM
     Route: 042
  10. REMIFENTANIL [Suspect]
     Active Substance: REMIFENTANIL
     Dosage: DOSE: 0.1?0.25 MCG/KG/MIN FOR GENERAL ANAESTHESIA MAINTENANCE.
     Route: 065
  11. REMIFENTANIL [Suspect]
     Active Substance: REMIFENTANIL
     Indication: GENERAL ANAESTHESIA
     Dosage: DOSE: 0.25MG/KG/MIN
     Route: 065

REACTIONS (2)
  - Hypotension [Recovered/Resolved]
  - Maternal exposure during pregnancy [Recovered/Resolved]
